FAERS Safety Report 20430263 (Version 1)
Quarter: 2022Q1

REPORT INFORMATION
  Report Type: Report from Study
  Country: US (occurrence: US)
  Receive Date: 20220204
  Receipt Date: 20220204
  Transmission Date: 20220423
  Serious: Yes (Hospitalization)
  Sender: FDA-Public Use
  Company Number: 20P-163-3424182-00

PATIENT

DRUGS (8)
  1. ONCASPAR [Suspect]
     Active Substance: PEGASPARGASE
     Indication: Acute lymphocytic leukaemia
     Dosage: 2625 MG, EVERY 2 WEEKS
     Route: 042
     Dates: start: 20200522
  2. VENETOCLAX [Suspect]
     Active Substance: VENETOCLAX
     Indication: Acute lymphocytic leukaemia
     Dosage: 80 MG, ONE DOSE
     Route: 048
     Dates: start: 20200518, end: 20200518
  3. VENETOCLAX [Suspect]
     Active Substance: VENETOCLAX
     Dosage: 170 MG, ONE DOSE
     Route: 048
     Dates: start: 20200519, end: 20200519
  4. VENETOCLAX [Suspect]
     Active Substance: VENETOCLAX
     Dosage: 350 MG, ONE DOSE
     Route: 048
     Dates: start: 20200520
  5. VINCRISTINE [Suspect]
     Active Substance: VINCRISTINE
     Indication: Acute lymphocytic leukaemia
     Dosage: 2 MG, EVERY 1 WEEK
     Route: 042
     Dates: start: 20200521
  6. DEXAMETHASONE SODIUM SUCCINATE [Suspect]
     Active Substance: DEXAMETHASONE SODIUM SUCCINATE
     Indication: Acute lymphocytic leukaemia
     Dosage: 5.5 MG, BID
     Route: 048
     Dates: start: 20200521
  7. TN UNSPECIFIED [Concomitant]
     Indication: Prophylaxis of nausea and vomiting
     Dosage: 4 MG, BID
     Dates: start: 20200518, end: 20200522
  8. TN UNSPECIFIED [Concomitant]
     Dosage: 4 MG, TID
     Dates: start: 20200518

REACTIONS (1)
  - Nausea [Not Recovered/Not Resolved]

NARRATIVE: CASE EVENT DATE: 20200525
